FAERS Safety Report 9946029 (Version 1)
Quarter: 2014Q1

REPORT INFORMATION
  Report Type: Spontaneous
  Country: US (occurrence: US)
  Receive Date: 20140303
  Receipt Date: 20140303
  Transmission Date: 20141002
  Serious: No
  Sender: FDA-Public Use
  Company Number: US-AMGEN-USASP2013067992

PATIENT
  Age: 62 Year
  Sex: Female
  Weight: 95.24 kg

DRUGS (14)
  1. ENBREL [Suspect]
     Indication: PRODUCT USED FOR UNKNOWN INDICATION
     Dosage: 50 MG, ONCE A WEEK EVERY MONDAY
     Route: 058
  2. LISINOPRIL [Concomitant]
     Dosage: 20 MG, UNK
  3. BUPROPION [Concomitant]
     Dosage: 100 MG, UNK
  4. GLIMEPIRIDE [Concomitant]
     Dosage: 2 MG, UNK
  5. METHOTREXATE [Concomitant]
     Dosage: 2.5 MG, UNK
  6. CALCIUM +D                         /00944201/ [Concomitant]
     Dosage: 500 UNK, UNK
  7. MULTIVITAMINS, PLAIN [Concomitant]
     Dosage: UNK
  8. IBUPROFEN [Concomitant]
     Dosage: 200 MG, UNK
  9. METFORMIN [Concomitant]
     Dosage: 1000 MG, UNK
  10. PLAQUENIL                          /00072602/ [Concomitant]
     Dosage: 200 MG, UNK
  11. JANUVIA [Concomitant]
     Dosage: 25 MG, UNK
  12. FOLIC ACID [Concomitant]
     Dosage: UNK
  13. VITAMIN D3 [Concomitant]
     Dosage: 1000 UNIT, UNK
  14. PRILOSEC                           /00661201/ [Concomitant]
     Dosage: 20 MG, UNK

REACTIONS (1)
  - Nasopharyngitis [Unknown]
